FAERS Safety Report 5328361-X (Version None)
Quarter: 2007Q2

REPORT INFORMATION
  Report Type: 
  Country: None (occurrence: None)
  Receive Date: 20070514
  Receipt Date: 20070426
  Transmission Date: 20071010
  Serious: Yes (Hospitalization, Other)
  Sender: FDA-Public Use
  Company Number: 2007AL001702

PATIENT
  Age: 53 Year
  Sex: Female

DRUGS (3)
  1. TRAMADOL HCL [Suspect]
     Indication: PAIN
     Dosage: QID
  2. PAROXETINE [Concomitant]
  3. ALPRAZOLAM [Concomitant]

REACTIONS (24)
  - ABNORMAL BEHAVIOUR [None]
  - AFFECT LABILITY [None]
  - AGITATION [None]
  - AUTONOMIC NERVOUS SYSTEM IMBALANCE [None]
  - BLOOD CREATINE PHOSPHOKINASE INCREASED [None]
  - BLOOD PRESSURE INCREASED [None]
  - BODY TEMPERATURE DECREASED [None]
  - BODY TEMPERATURE INCREASED [None]
  - CLONUS [None]
  - CONDITION AGGRAVATED [None]
  - CONFUSIONAL STATE [None]
  - DELUSION OF GRANDEUR [None]
  - DYSARTHRIA [None]
  - ELEVATED MOOD [None]
  - GRAND MAL CONVULSION [None]
  - HYPERTONIA [None]
  - MANIA [None]
  - MYDRIASIS [None]
  - MYOCLONUS [None]
  - PAIN [None]
  - POVERTY OF THOUGHT CONTENT [None]
  - PRESSURE OF SPEECH [None]
  - SEROTONIN SYNDROME [None]
  - TACHYCARDIA [None]
